FAERS Safety Report 6142487-2 (Version None)
Quarter: 2009Q2

REPORT INFORMATION
  Report Type: 
  Country: None (occurrence: None)
  Receive Date: 20090403
  Receipt Date: 20090331
  Transmission Date: 20091009
  Serious: Yes (Other)
  Sender: FDA-Public Use
  Company Number: DK-BRISTOL-MYERS SQUIBB COMPANY-14567382

PATIENT
  Age: 32 Year
  Sex: Female

DRUGS (3)
  1. ORENCIA [Suspect]
     Indication: RHEUMATOID ARTHRITIS
     Dosage: 750MG TWICE A WEEK AND THEREAFTER 750MG EVERY FOURTH WEEK
     Dates: start: 20081010
  2. METHOTREXATE [Concomitant]
     Dates: start: 20080415, end: 20090120
  3. HYDROXYCHLOROQUINE [Concomitant]
     Dates: start: 20080217, end: 20090120

REACTIONS (2)
  - MYOSITIS [None]
  - RASH [None]
